FAERS Safety Report 7597323 (Version 5)
Quarter: 2013Q3

REPORT INFORMATION
  Report Type: Spontaneous
  Country: US (occurrence: US)
  Receive Date: 20100920
  Receipt Date: 20130911
  Transmission Date: 20140515
  Serious: No
  Sender: FDA-Public Use
  Company Number: US-ASTRAZENECA-2010SE35034

PATIENT
  Age: 645 Month
  Sex: Male
  Weight: 75.3 kg

DRUGS (24)
  1. SEROQUEL [Suspect]
     Indication: NIGHTMARE
     Route: 048
     Dates: start: 2004
  2. SEROQUEL [Suspect]
     Indication: POST-TRAUMATIC STRESS DISORDER
     Route: 048
     Dates: start: 2004
  3. SEROQUEL [Suspect]
     Indication: ABNORMAL DREAMS
     Route: 048
     Dates: start: 2004
  4. SEROQUEL [Suspect]
     Indication: SCHIZOPHRENIA
     Route: 048
     Dates: start: 2004
  5. SEROQUEL [Suspect]
     Indication: BIPOLAR DISORDER
     Route: 048
     Dates: start: 2004
  6. SEROQUEL [Suspect]
     Indication: ANXIETY
     Route: 048
     Dates: start: 2004
  7. SEROQUEL [Suspect]
     Indication: DEPRESSION
     Route: 048
     Dates: start: 2004
  8. SEROQUEL [Suspect]
     Indication: NIGHTMARE
     Route: 048
     Dates: start: 2004
  9. SEROQUEL [Suspect]
     Indication: POST-TRAUMATIC STRESS DISORDER
     Route: 048
     Dates: start: 2004
  10. SEROQUEL [Suspect]
     Indication: ABNORMAL DREAMS
     Route: 048
     Dates: start: 2004
  11. SEROQUEL [Suspect]
     Indication: SCHIZOPHRENIA
     Route: 048
     Dates: start: 2004
  12. SEROQUEL [Suspect]
     Indication: BIPOLAR DISORDER
     Route: 048
     Dates: start: 2004
  13. SEROQUEL [Suspect]
     Indication: ANXIETY
     Route: 048
     Dates: start: 2004
  14. SEROQUEL [Suspect]
     Indication: DEPRESSION
     Route: 048
     Dates: start: 2004
  15. CLONAZOPAM [Concomitant]
     Indication: INSOMNIA
     Route: 048
  16. DOXAZOSIN [Concomitant]
     Indication: INTERVERTEBRAL DISC DISORDER
     Route: 048
  17. MELOXIC [Concomitant]
     Indication: PROSTATIC DISORDER
     Route: 048
  18. TAMOZOPAM [Concomitant]
     Indication: SLEEP DISORDER
  19. TAMOZOPAM [Concomitant]
     Indication: AMNESIA
  20. ALEVE [Concomitant]
     Indication: MULTIPLE INJURIES
  21. ALEVE [Concomitant]
     Indication: ARTHRALGIA
  22. ADVIL [Concomitant]
     Indication: MULTIPLE INJURIES
     Dosage: GENERIC
  23. ADVIL [Concomitant]
     Indication: ARTHRALGIA
     Dosage: GENERIC
  24. AMBIEN [Concomitant]
     Indication: SLEEP DISORDER

REACTIONS (13)
  - Malaise [Unknown]
  - Nausea [Unknown]
  - Diarrhoea [Unknown]
  - Aphagia [Unknown]
  - Insomnia [Unknown]
  - Hot flush [Unknown]
  - Influenza like illness [Unknown]
  - Arthritis [Unknown]
  - Drug withdrawal syndrome [Unknown]
  - Vomiting [Unknown]
  - Drug dose omission [Unknown]
  - Off label use [Unknown]
  - Intentional drug misuse [Unknown]
